FAERS Safety Report 17052709 (Version 2)
Quarter: 2020Q3

REPORT INFORMATION
  Report Type: Spontaneous
  Country: US (occurrence: US)
  Receive Date: 20191120
  Receipt Date: 20200903
  Transmission Date: 20201102
  Serious: Yes (Hospitalization)
  Sender: FDA-Public Use
  Company Number: US-GW PHARMA-201911USGW4091

PATIENT

DRUGS (10)
  1. PERPHENAZINE. [Concomitant]
     Active Substance: PERPHENAZINE
     Indication: PSYCHOTIC DISORDER
     Dosage: 8 MILLIGRAM, TID
     Route: 065
  2. TRAZODONE [Concomitant]
     Active Substance: TRAZODONE HYDROCHLORIDE
     Indication: PSYCHOTIC DISORDER
     Dosage: 300 MILLIGRAM, QHS
     Route: 065
  3. FELBAMATE. [Concomitant]
     Active Substance: FELBAMATE
     Indication: SEIZURE
     Dosage: 24 MILLIGRAM/KILOGRAM, QD
     Route: 065
  4. CLOBAZAM. [Concomitant]
     Active Substance: CLOBAZAM
     Dosage: 10 MILLIGRAM, BID
     Route: 065
     Dates: start: 201908
  5. QUETIAPINE. [Concomitant]
     Active Substance: QUETIAPINE
     Indication: PSYCHOTIC DISORDER
     Dosage: 600 MILLIGRAM, QD (200 MG BID, 600 MG QHS)
     Route: 065
  6. EPIDIOLEX [Suspect]
     Active Substance: CANNABIDIOL
     Indication: LENNOX-GASTAUT SYNDROME
     Dosage: 9.6MG/KG, 360 MILLIGRAM, BID
     Route: 048
     Dates: start: 201908
  7. EPIDIOLEX [Interacting]
     Active Substance: CANNABIDIOL
     Dosage: 5 MILLIGRAM/KILOGRAM, QD
     Route: 048
     Dates: start: 2019, end: 201908
  8. LITHIUM. [Interacting]
     Active Substance: LITHIUM
     Indication: AGGRESSION
     Dosage: 1500 MILLIGRAM, QD (600MG AM, 300MG PM, 600MG QHS)
     Route: 065
     Dates: end: 20190807
  9. CLOBAZAM. [Concomitant]
     Active Substance: CLOBAZAM
     Indication: SEIZURE
     Dosage: 20 MILLIGRAM, BID
     Route: 065
     Dates: end: 2019
  10. CLONIDINE. [Concomitant]
     Active Substance: CLONIDINE
     Indication: PRODUCT USED FOR UNKNOWN INDICATION
     Dosage: UNK
     Route: 065

REACTIONS (6)
  - Toxicity to various agents [Recovered/Resolved]
  - Drug interaction [Recovered/Resolved]
  - Lethargy [Recovering/Resolving]
  - Hypophagia [Recovering/Resolving]
  - Balance disorder [Recovering/Resolving]
  - Asthenia [Recovering/Resolving]

NARRATIVE: CASE EVENT DATE: 201908
